FAERS Safety Report 9260003 (Version 1)
Quarter: 2013Q2

REPORT INFORMATION
  Report Type: Spontaneous
  Country: DE (occurrence: DE)
  Receive Date: 20130429
  Receipt Date: 20130429
  Transmission Date: 20140414
  Serious: Yes (Other)
  Sender: FDA-Public Use
  Company Number: DE-JNJFOC-20130415437

PATIENT
  Age: 57 Year
  Sex: Female
  Weight: 68 kg

DRUGS (2)
  1. XARELTO [Suspect]
     Indication: PROPHYLAXIS
     Route: 048
  2. RELPAX [Concomitant]
     Indication: MIGRAINE
     Route: 065

REACTIONS (2)
  - Deep vein thrombosis [Recovered/Resolved]
  - Off label use [Unknown]
